FAERS Safety Report 8848845 (Version 3)
Quarter: 2013Q4

REPORT INFORMATION
  Report Type: Spontaneous
  Country: US (occurrence: US)
  Receive Date: 20121018
  Receipt Date: 20131218
  Transmission Date: 20140711
  Serious: Yes (Hospitalization, Other)
  Sender: FDA-Public Use
  Company Number: US-BAYER-2012-106621

PATIENT
  Age: 35 Year
  Sex: Female

DRUGS (11)
  1. YAZ [Suspect]
     Indication: ACNE
     Dosage: UNK
     Dates: start: 2009, end: 2009
  2. DOXYCYCLINE [Concomitant]
     Dosage: 100 MG, UNK
  3. PROPOXYPHENE HCL AND ACETAMINOPHEN [Concomitant]
  4. SULFAMETHOXAZOLE/TRIMETHOPRIM [Concomitant]
  5. WELLBUTRIN [Concomitant]
  6. BUPROPION [Concomitant]
  7. SEROQUEL [Concomitant]
     Dosage: 100 MG, UNK
  8. FLUCONAZOLE [Concomitant]
     Dosage: 150 MG, UNK
  9. METRONIDAZOLE [Concomitant]
  10. QUINAPRIL [Concomitant]
  11. GLIPIZIDE [Concomitant]

REACTIONS (7)
  - Gallbladder disorder [None]
  - Cholelithiasis [None]
  - Major depression [None]
  - Pain [None]
  - Injury [None]
  - Fear of disease [None]
  - Pain [None]
